FAERS Safety Report 19610541 (Version 2)
Quarter: 2025Q3

REPORT INFORMATION
  Report Type: Report from Study
  Country: US (occurrence: US)
  Receive Date: 20210726
  Receipt Date: 20250813
  Transmission Date: 20251020
  Serious: No
  Sender: TAKEDA
  Company Number: US-TAKEDA-2021TUS045909

PATIENT
  Age: 80 Year
  Sex: Male

DRUGS (5)
  1. IXAZOMIB [Suspect]
     Active Substance: IXAZOMIB
     Indication: Plasma cell myeloma
  2. IXAZOMIB [Suspect]
     Active Substance: IXAZOMIB
  3. PRIMIDONE [Concomitant]
     Active Substance: PRIMIDONE
  4. REVLIMID [Concomitant]
     Active Substance: LENALIDOMIDE
  5. EPLERENONE [Concomitant]
     Active Substance: EPLERENONE

REACTIONS (3)
  - No adverse event [Unknown]
  - Off label use [Unknown]
  - Product dose omission issue [Unknown]

NARRATIVE: CASE EVENT DATE: 20210721
